FAERS Safety Report 9170677 (Version 1)
Quarter: 2013Q1

REPORT INFORMATION
  Report Type: Spontaneous
  Country: US (occurrence: None)
  Receive Date: 20130315
  Receipt Date: 20130315
  Transmission Date: 20140127
  Serious: Yes (Death)
  Sender: FDA-Public Use
  Company Number: None

PATIENT
  Age: 65 Year
  Sex: Female
  Weight: 47.63 kg

DRUGS (1)
  1. KYPROLIS CHEMO INFUSION ONYX [Suspect]
     Indication: PLASMA CELL MYELOMA

REACTIONS (8)
  - Dyspnoea [None]
  - Epistaxis [None]
  - Stomatitis [None]
  - Headache [None]
  - Nausea [None]
  - Cerebrovascular accident [None]
  - Respiratory distress [None]
  - Respiratory arrest [None]
